FAERS Safety Report 6253343-3 (Version None)
Quarter: 2009Q3

REPORT INFORMATION
  Report Type: 
  Country: None (occurrence: None)
  Receive Date: 20090701
  Receipt Date: 20090626
  Transmission Date: 20100115
  Serious: Yes (Hospitalization, Other)
  Sender: FDA-Public Use
  Company Number: PHEH2009US04287

PATIENT
  Sex: Female
  Weight: 68.027 kg

DRUGS (3)
  1. FEMARA [Suspect]
     Indication: BREAST CANCER
     Dosage: 10 PILLS
     Route: 048
  2. GLUCOSAMINE [Concomitant]
  3. VITAMIN B-12 [Concomitant]

REACTIONS (13)
  - ABASIA [None]
  - ARTHRALGIA [None]
  - ATRIAL FIBRILLATION [None]
  - BACK PAIN [None]
  - BLOOD PRESSURE DECREASED [None]
  - BONE PAIN [None]
  - BREAST PAIN [None]
  - CRYING [None]
  - DEPRESSION [None]
  - ERYTHEMA [None]
  - FALL [None]
  - LIBIDO DECREASED [None]
  - MALAISE [None]
